FAERS Safety Report 7289245-3 (Version None)
Quarter: 2011Q1

REPORT INFORMATION
  Report Type: 
  Country: None (occurrence: None)
  Receive Date: 20110211
  Receipt Date: 20110209
  Transmission Date: 20110831
  Serious: Yes (Other)
  Sender: FDA-Public Use
  Company Number: JP-PFIZER INC-2011029434

PATIENT
  Age: 57 Year
  Sex: Female

DRUGS (2)
  1. LYRICA [Suspect]
     Indication: PAIN
     Dosage: 75 MG DAILY
     Dates: start: 20110101
  2. LYRICA [Suspect]
     Dosage: 150 MG DAILY

REACTIONS (7)
  - MUSCULOSKELETAL STIFFNESS [None]
  - ASTHENIA [None]
  - VOMITING [None]
  - VISUAL IMPAIRMENT [None]
  - MEMORY IMPAIRMENT [None]
  - FALL [None]
  - NAUSEA [None]
